FAERS Safety Report 6177698-3 (Version None)
Quarter: 2009Q2

REPORT INFORMATION
  Report Type: 
  Country: None (occurrence: None)
  Receive Date: 20090504
  Receipt Date: 20090429
  Transmission Date: 20091009
  Serious: Yes (Death, Hospitalization, Other)
  Sender: FDA-Public Use
  Company Number: US-ROXANE LABORATORIES, INC.-2009-RO-00423RO

PATIENT
  Age: 42 Year
  Sex: Female

DRUGS (4)
  1. PREDNISONE [Suspect]
     Indication: EPSTEIN-BARR VIRUS INFECTION
     Dosage: 20MG
     Route: 048
  2. VANCOMYCIN HCL [Suspect]
     Indication: ALPHA HAEMOLYTIC STREPTOCOCCAL INFECTION
  3. GENTAMICIN [Suspect]
     Indication: ALPHA HAEMOLYTIC STREPTOCOCCAL INFECTION
  4. CEFTRIAXONE [Suspect]
     Indication: ALPHA HAEMOLYTIC STREPTOCOCCAL INFECTION
     Dosage: 2G
     Route: 042

REACTIONS (5)
  - ACUTE MYOCARDIAL INFARCTION [None]
  - ALPHA HAEMOLYTIC STREPTOCOCCAL INFECTION [None]
  - ENDOCARDITIS [None]
  - RESPIRATORY DISTRESS [None]
  - SPLENOMEGALY [None]
